FAERS Safety Report 20552704 (Version 1)
Quarter: 2022Q1

REPORT INFORMATION
  Report Type: Spontaneous
  Country: US (occurrence: US)
  Receive Date: 20220304
  Receipt Date: 20220304
  Transmission Date: 20220423
  Serious: Yes (Other)
  Sender: FDA-Public Use
  Company Number: US-SA-SAC20220303000563

PATIENT
  Age: 47 Year
  Sex: Female

DRUGS (1)
  1. ZANTAC [Suspect]
     Active Substance: RANITIDINE HYDROCHLORIDE
     Dosage: UNKNOWN AT THIS TIME
     Route: 065
     Dates: start: 201601, end: 201909

REACTIONS (1)
  - Ovarian cancer stage II [Not Recovered/Not Resolved]

NARRATIVE: CASE EVENT DATE: 20151101
